FAERS Safety Report 21323979 (Version 2)
Quarter: 2022Q4

REPORT INFORMATION
  Report Type: Spontaneous
  Country: US (occurrence: US)
  Receive Date: 20220912
  Receipt Date: 20221121
  Transmission Date: 20230113
  Serious: Yes (Other)
  Sender: FDA-Public Use
  Company Number: US-JNJFOC-20220919213

PATIENT
  Age: 73 Year
  Sex: Male

DRUGS (6)
  1. ELMIRON [Suspect]
     Active Substance: PENTOSAN POLYSULFATE SODIUM
     Indication: Cystitis interstitial
     Route: 048
     Dates: start: 20111118, end: 20200423
  2. XALATAN [Concomitant]
     Active Substance: LATANOPROST
     Indication: Glaucoma
     Dates: start: 201101, end: 202009
  3. TESTOSTERONE [Concomitant]
     Active Substance: TESTOSTERONE
     Indication: Hormone level abnormal
     Dates: start: 201103, end: 202009
  4. RANITIDINE [Concomitant]
     Active Substance: RANITIDINE
     Indication: Dyspepsia
     Dates: start: 201808, end: 202003
  5. TRIAMCINOLONE ACETONIDE [Concomitant]
     Active Substance: TRIAMCINOLONE ACETONIDE
     Indication: Skin disorder
     Dates: start: 201802, end: 202009
  6. COSOPT [Concomitant]
     Active Substance: DORZOLAMIDE HYDROCHLORIDE\TIMOLOL MALEATE
     Indication: Glaucoma
     Dates: start: 201803, end: 202012

REACTIONS (1)
  - Retinal pigmentation [Unknown]

NARRATIVE: CASE EVENT DATE: 20200301
